FAERS Safety Report 5569961-1 (Version None)
Quarter: 2007Q4

REPORT INFORMATION
  Report Type: 
  Country: None (occurrence: None)
  Receive Date: 20071220
  Receipt Date: 20071212
  Transmission Date: 20080405
  Serious: Yes (Hospitalization)
  Sender: FDA-Public Use
  Company Number: US-GENENTECH-252703

PATIENT
  Age: 53 Year
  Sex: Female
  Weight: 71.4 kg

DRUGS (7)
  1. BEVACIZUMAB [Suspect]
     Indication: GLIOBLASTOMA MULTIFORME
     Dosage: 10 MG/KG, DAYS 1+15
     Route: 042
     Dates: start: 20070827, end: 20071120
  2. IRINOTECAN HCL [Concomitant]
     Indication: GLIOBLASTOMA MULTIFORME
     Dosage: 125 MG/M2, DAYS 1+15
     Route: 042
     Dates: start: 20070827, end: 20071120
  3. KEFLEX [Concomitant]
     Indication: DRUG USE FOR UNKNOWN INDICATION
  4. KEPPRA [Concomitant]
     Indication: DRUG USE FOR UNKNOWN INDICATION
  5. LASIX [Concomitant]
     Indication: DRUG USE FOR UNKNOWN INDICATION
  6. WARFARIN SODIUM [Concomitant]
     Indication: DRUG USE FOR UNKNOWN INDICATION
  7. UNSPECIFIED CONCOMITANT DRUGS [Concomitant]
     Indication: DRUG USE FOR UNKNOWN INDICATION

REACTIONS (1)
  - BRAIN ABSCESS [None]
